FAERS Safety Report 16478371 (Version 1)
Quarter: 2019Q2

REPORT INFORMATION
  Report Type: Spontaneous
  Country: JP (occurrence: JP)
  Receive Date: 20190626
  Receipt Date: 20190626
  Transmission Date: 20190711
  Serious: Yes (Other)
  Sender: FDA-Public Use
  Company Number: JP-PFIZER INC-2019269454

PATIENT
  Age: 9 Decade
  Sex: Female

DRUGS (1)
  1. LYRICA [Suspect]
     Active Substance: PREGABALIN
     Dosage: 150 MG, UNK (75MG, TWO TABLETS)

REACTIONS (3)
  - Wrist fracture [Unknown]
  - Dizziness [Unknown]
  - Fall [Unknown]
